FAERS Safety Report 7834674-X (Version None)
Quarter: 2011Q4

REPORT INFORMATION
  Report Type: 
  Country: None (occurrence: None)
  Receive Date: 20111024
  Receipt Date: 20111017
  Transmission Date: 20120403
  Serious: Yes (Other)
  Sender: FDA-Public Use
  Company Number: US-AMGEN-USASP2011053478

PATIENT
  Age: 82 Year
  Sex: Male

DRUGS (2)
  1. ARANESP [Suspect]
     Indication: RENAL FAILURE CHRONIC
     Dosage: UNK UNK, PRN
  2. ARANESP [Suspect]
     Dosage: UNK UNK, Q3WK

REACTIONS (2)
  - HAEMOGLOBIN DECREASED [None]
  - PAIN [None]
